FAERS Safety Report 23190777 (Version 2)
Quarter: 2023Q4

REPORT INFORMATION
  Report Type: Spontaneous
  Country: CH (occurrence: CH)
  Receive Date: 20231116
  Receipt Date: 20231116
  Transmission Date: 20240110
  Serious: Yes (Other)
  Sender: FDA-Public Use
  Company Number: CH-TEVA-2023-CH-2944912

PATIENT
  Age: 64 Year
  Sex: Female

DRUGS (1)
  1. CIPROFLOXACIN [Suspect]
     Active Substance: CIPROFLOXACIN
     Indication: Respiratory disorder
     Route: 048

REACTIONS (5)
  - Visual impairment [Unknown]
  - Coeliac disease [Unknown]
  - Diarrhoea [Unknown]
  - Molybdenum deficiency [Unknown]
  - Ovarian disorder [Unknown]
